FAERS Safety Report 9126132 (Version 1)
Quarter: 2013Q1

REPORT INFORMATION
  Report Type: Report from Study
  Country: GB (occurrence: GB)
  Receive Date: 20130117
  Receipt Date: 20130117
  Transmission Date: 20140127
  Serious: Yes (Hospitalization)
  Sender: FDA-Public Use
  Company Number: GB-VERTEX PHARMACEUTICALS INC.-2013-000721

PATIENT
  Sex: Female

DRUGS (3)
  1. VX-950 (TELAPREVIR) [Suspect]
     Indication: HEPATITIS C
     Dosage: UNK
     Route: 048
     Dates: start: 20121218
  2. RIBAVIRIN [Concomitant]
  3. INTERFERON [Concomitant]

REACTIONS (4)
  - Cardiac arrest [Unknown]
  - Respiratory disorder [Unknown]
  - Cardiac disorder [Unknown]
  - Fatigue [Not Recovered/Not Resolved]
